FAERS Safety Report 8390336-4 (Version None)
Quarter: 2012Q2

REPORT INFORMATION
  Report Type: 
  Country: None (occurrence: None)
  Receive Date: 20120529
  Receipt Date: 20120524
  Transmission Date: 20120825
  Serious: Yes (Hospitalization)
  Sender: FDA-Public Use
  Company Number: GB-PFIZER INC-2012095783

PATIENT
  Age: 38 Year
  Sex: Female

DRUGS (2)
  1. SERTRALINE HYDROCHLORIDE [Suspect]
     Indication: DEPRESSION
     Dosage: 50 MG, 1X/DAY
     Route: 048
     Dates: start: 20120206, end: 20120101
  2. SERTRALINE HYDROCHLORIDE [Suspect]
     Dosage: 100 MG, UNK
     Route: 048
     Dates: start: 20120101, end: 20120319

REACTIONS (4)
  - OESOPHAGITIS [None]
  - PAIN [None]
  - DYSPEPSIA [None]
  - ABDOMINAL PAIN UPPER [None]
